FAERS Safety Report 9296532 (Version 1)
Quarter: 2013Q2

REPORT INFORMATION
  Report Type: Spontaneous
  Country: US (occurrence: US)
  Receive Date: 20130517
  Receipt Date: 20130517
  Transmission Date: 20140414
  Serious: Yes (Hospitalization)
  Sender: FDA-Public Use
  Company Number: US-ELI_LILLY_AND_COMPANY-US201305003303

PATIENT
  Age: 57 Year
  Sex: Female

DRUGS (6)
  1. HUMALOG LISPRO [Suspect]
     Indication: TYPE 2 DIABETES MELLITUS
     Dosage: 40 U, TID
  2. HUMALOG LISPRO [Suspect]
     Dosage: UNK, PRN
  3. ZOLOFT [Concomitant]
  4. LISINOPRIL [Concomitant]
  5. FLUCONAZOLE [Concomitant]
  6. LANTUS [Concomitant]

REACTIONS (2)
  - Cellulitis [Unknown]
  - Cellulitis [Not Recovered/Not Resolved]
